FAERS Safety Report 21995270 (Version 1)
Quarter: 2023Q1

REPORT INFORMATION
  Report Type: Spontaneous
  Country: US (occurrence: None)
  Receive Date: 20230214
  Receipt Date: 20230214
  Transmission Date: 20230418
  Serious: Yes (Other)
  Sender: FDA-Public Use
  Company Number: None

PATIENT
  Age: 27 Year
  Sex: Male
  Weight: 76.5 kg

DRUGS (1)
  1. DEXTROAMPHETAMINE [Suspect]
     Active Substance: DEXTROAMPHETAMINE

REACTIONS (7)
  - Abdominal pain upper [None]
  - Fatigue [None]
  - Depression [None]
  - Irritability [None]
  - Mood swings [None]
  - Disturbance in attention [None]
  - Muscle tightness [None]

NARRATIVE: CASE EVENT DATE: 20230213
